FAERS Safety Report 9713781 (Version 1)
Quarter: 2013Q4

REPORT INFORMATION
  Report Type: Spontaneous
  Country: GB (occurrence: GB)
  Receive Date: 20131126
  Receipt Date: 20131126
  Transmission Date: 20140711
  Serious: Yes (Hospitalization)
  Sender: FDA-Public Use
  Company Number: GB-GE HEALTHCARE MEDICAL DIAGNOSTICS-VISP-PR-1311S-0908

PATIENT
  Age: 60 Year
  Sex: Female
  Weight: 98 kg

DRUGS (3)
  1. VISIPAQUE [Suspect]
     Indication: CHEST DISCOMFORT
     Route: 013
     Dates: start: 20131106, end: 20131106
  2. VISIPAQUE [Suspect]
     Indication: DYSPNOEA
  3. VISIPAQUE [Suspect]
     Indication: DIAGNOSTIC PROCEDURE

REACTIONS (3)
  - Rash [Recovered/Resolved]
  - Heart rate increased [Recovered/Resolved]
  - Hypotension [Recovered/Resolved]
